FAERS Safety Report 13149806 (Version 1)
Quarter: 2017Q1

REPORT INFORMATION
  Report Type: Spontaneous
  Country: ID (occurrence: ID)
  Receive Date: 20170125
  Receipt Date: 20170125
  Transmission Date: 20170428
  Serious: Yes (Death)
  Sender: FDA-Public Use
  Company Number: ID-TAKEDA-2017TJP001611

PATIENT
  Age: 57 Year
  Sex: Male

DRUGS (1)
  1. PROSOGAN [Suspect]
     Active Substance: LANSOPRAZOLE
     Indication: HAEMATEMESIS
     Dosage: 30 MG, UNK
     Route: 040
     Dates: start: 20161214, end: 20161214

REACTIONS (1)
  - Apnoea [Fatal]

NARRATIVE: CASE EVENT DATE: 20161214
